FAERS Safety Report 15886205 (Version 2)
Quarter: 2020Q1

REPORT INFORMATION
  Report Type: Spontaneous
  Country: RU (occurrence: RU)
  Receive Date: 20190129
  Receipt Date: 20200109
  Transmission Date: 20200409
  Serious: Yes (Death, Hospitalization)
  Sender: FDA-Public Use
  Company Number: RU-MYLANLABS-2019M1007441

PATIENT
  Age: 7 Year
  Sex: Male

DRUGS (4)
  1. CYSTEAMINE HYDROCHLORIDE MYLAN [Suspect]
     Active Substance: CYSTEAMINE HYDROCHLORIDE
     Indication: CYSTINOSIS
     Dosage: UNK
     Route: 065
  2. CYSTEAMINE BITARTRATE [Suspect]
     Active Substance: CYSTEAMINE BITARTRATE
     Indication: CYSTINOSIS
  3. CYSTADROPS [Suspect]
     Active Substance: CYSTEAMINE HYDROCHLORIDE
     Indication: CYSTINOSIS
  4. CYSTAGON [Suspect]
     Active Substance: CYSTEAMINE BITARTRATE
     Indication: CYSTINOSIS
     Dosage: UNK
     Route: 065

REACTIONS (5)
  - Herpes virus infection [Unknown]
  - Dehydration [Unknown]
  - Body temperature increased [Unknown]
  - Death [Fatal]
  - Aphthous ulcer [Unknown]

NARRATIVE: CASE EVENT DATE: 20181202
